FAERS Safety Report 4643926-6 (Version None)
Quarter: 2005Q2

REPORT INFORMATION
  Report Type: 
  Country: None (occurrence: None)
  Receive Date: 20050418
  Receipt Date: 20050406
  Transmission Date: 20051028
  Serious: Yes (Hospitalization)
  Sender: FDA-Public Use
  Company Number: 2004-02843

PATIENT
  Age: 76 Year
  Sex: Male

DRUGS (7)
  1. IMMUCYST (BCG - IT (CONNAUGHT)), AVENTIS PASTEUR LTD., LOT NOT REP, I3 [Suspect]
     Indication: BLADDER CANCER
     Dosage: (80.0 MG), I.VES., BLADDER
     Dates: start: 20040607, end: 20040712
  2. DOXIFLURIDINE [Concomitant]
  3. AMLODIPINE BESYLATE [Concomitant]
  4. TOCOPHEROL CONCENTRATE CAP [Concomitant]
  5. ASPIRIN [Concomitant]
  6. RANITIDINE HYDROCHLORIDE [Concomitant]
  7. ZOLPIDEM TARTRATE [Concomitant]

REACTIONS (2)
  - HYPERSENSITIVITY [None]
  - PNEUMONIA [None]
